FAERS Safety Report 6905481-7 (Version None)
Quarter: 2010Q3

REPORT INFORMATION
  Report Type: 
  Country: None (occurrence: None)
  Receive Date: 20100804
  Receipt Date: 20090504
  Transmission Date: 20110219
  Serious: No
  Sender: FDA-Public Use
  Company Number: US-PFIZER INC-2009194392

PATIENT
  Sex: Male

DRUGS (3)
  1. LYRICA [Suspect]
     Indication: CONVULSION
     Dosage: UNK
  2. LAMICTAL [Suspect]
     Indication: CONVULSION
     Dosage: UNK
  3. PHENOBARB [Suspect]
     Indication: CONVULSION
     Dosage: UNK

REACTIONS (1)
  - GAIT DISTURBANCE [None]
